FAERS Safety Report 9762877 (Version 2)
Quarter: 2014Q1

REPORT INFORMATION
  Report Type: Spontaneous
  Country: US (occurrence: US)
  Receive Date: 20131216
  Receipt Date: 20140303
  Transmission Date: 20141002
  Serious: No
  Sender: FDA-Public Use
  Company Number: US-TEVA-447628USA

PATIENT
  Age: 32 Year
  Sex: Female
  Weight: 71.73 kg

DRUGS (2)
  1. PARAGARD 380A [Suspect]
     Indication: CONTRACEPTION
     Dates: start: 200911, end: 20131125
  2. IRON [Concomitant]

REACTIONS (3)
  - Vaginal haemorrhage [Unknown]
  - Device expulsion [Recovered/Resolved]
  - Metrorrhagia [Not Recovered/Not Resolved]
